FAERS Safety Report 12760409 (Version 1)
Quarter: 2016Q3

REPORT INFORMATION
  Report Type: Spontaneous
  Country: US (occurrence: US)
  Receive Date: 20160919
  Receipt Date: 20160919
  Transmission Date: 20161109
  Serious: No
  Sender: FDA-Public Use
  Company Number: US-BAUSCH-BL-2016-009936

PATIENT
  Age: 60 Year
  Sex: Female

DRUGS (3)
  1. LISINOPRIL. [Concomitant]
     Active Substance: LISINOPRIL
     Indication: HYPERTENSION
     Route: 048
  2. ERYTHROMYCIN OPHTHALMIC OINTMENT USP 0.5% [Suspect]
     Active Substance: ERYTHROMYCIN
     Indication: EYE INFECTION
     Dosage: 1 APPLICATION TO THE LEFT EYELIDS EVERY 6 HOURS
     Route: 047
     Dates: start: 20160406, end: 20160423
  3. TOBRAMYCIN OPHTHALMIC SOLUTION USP 0.3% [Suspect]
     Active Substance: TOBRAMYCIN
     Indication: EYE INFECTION
     Dosage: 2 DROPS IN THE LEFT EYE EVERY 6 HOURS
     Route: 047
     Dates: start: 20160406, end: 20160423

REACTIONS (10)
  - Condition aggravated [Recovering/Resolving]
  - Eye swelling [Recovering/Resolving]
  - Eye pain [Recovering/Resolving]
  - Eye infection [Recovering/Resolving]
  - Condition aggravated [Recovering/Resolving]
  - Ocular hyperaemia [Recovering/Resolving]
  - Purulent discharge [Recovering/Resolving]
  - Foreign body sensation in eyes [Recovering/Resolving]
  - Eye discharge [Recovering/Resolving]
  - Drug ineffective [Unknown]

NARRATIVE: CASE EVENT DATE: 201604
